FAERS Safety Report 9611041 (Version 2)
Quarter: 2013Q4

REPORT INFORMATION
  Report Type: Spontaneous
  Country: GB (occurrence: GB)
  Receive Date: 20131009
  Receipt Date: 20131009
  Transmission Date: 20140711
  Serious: Yes (Other)
  Sender: FDA-Public Use
  Company Number: GB-TEVA-347668ISR

PATIENT
  Age: 4 Year
  Sex: Male
  Weight: 26.04 kg

DRUGS (3)
  1. CETIRIZINE [Suspect]
     Indication: SEASONAL ALLERGY
     Route: 048
     Dates: start: 201206
  2. MELATONIN [Suspect]
     Indication: POOR QUALITY SLEEP
     Route: 048
     Dates: start: 20120531
  3. MELATONIN [Suspect]
     Dosage: INCREASED TO 6MG AFTER THREE MONTHS
     Route: 048
     Dates: start: 201202, end: 2012

REACTIONS (3)
  - Loss of consciousness [Recovered/Resolved]
  - Somnolence [Recovered/Resolved]
  - Wrong patient received medication [Unknown]
